FAERS Safety Report 4286887-4 (Version None)
Quarter: 2004Q1

REPORT INFORMATION
  Report Type: 
  Country: None (occurrence: None)
  Receive Date: 20040206
  Receipt Date: 20040126
  Transmission Date: 20041129
  Serious: Yes (Other)
  Sender: FDA-Public Use
  Company Number: CA-BRISTOL-MYERS SQUIBB COMPANY-12497806

PATIENT
  Age: 16 Year
  Sex: Male

DRUGS (1)
  1. CEFZIL [Suspect]
     Route: 048

REACTIONS (1)
  - INFLAMMATORY BOWEL DISEASE [None]
